FAERS Safety Report 19824730 (Version 2)
Quarter: 2021Q3

REPORT INFORMATION
  Report Type: Other
  Country: JP (occurrence: JP)
  Receive Date: 20210914
  Receipt Date: 20210914
  Transmission Date: 20211014
  Serious: Yes (Hospitalization)
  Sender: FDA-Public Use
  Company Number: JP-ROCHE-2907135

PATIENT
  Age: 79 Year
  Sex: Male
  Weight: 67.3 kg

DRUGS (9)
  1. SPIRONOLACTONE. [Concomitant]
     Active Substance: SPIRONOLACTONE
     Indication: OEDEMA
     Dosage: 25 MILLIGRAM, QD
     Route: 048
     Dates: start: 20190922
  2. ATEZOLIZUMAB. [Suspect]
     Active Substance: ATEZOLIZUMAB
     Indication: HEPATOCELLULAR CARCINOMA
     Route: 041
     Dates: start: 20210706, end: 20210816
  3. BEVACIZUMAB. [Suspect]
     Active Substance: BEVACIZUMAB
     Indication: HEPATOCELLULAR CARCINOMA
     Dosage: UNK
     Route: 042
     Dates: start: 20210706, end: 20210816
  4. ELIQUIS [Concomitant]
     Active Substance: APIXABAN
     Indication: ATRIAL FIBRILLATION
     Dosage: 5 MILLIGRAM, BID
     Route: 048
     Dates: start: 20180821
  5. NEXIUM [Concomitant]
     Active Substance: ESOMEPRAZOLE MAGNESIUM
     Indication: GASTROOESOPHAGEAL REFLUX DISEASE
     Dosage: 20 MILLIGRAM, QD
     Route: 048
     Dates: start: 20210615
  6. DIART (JAPAN) [Concomitant]
     Indication: OEDEMA
     Dosage: 30 MILLIGRAM, QD
     Route: 048
     Dates: start: 20190620
  7. FEBURIC [Concomitant]
     Active Substance: FEBUXOSTAT
     Indication: HYPERURICAEMIA
     Dosage: 40 MILLIGRAM, QD
     Route: 048
     Dates: start: 20180828
  8. ALOSENN [Concomitant]
     Indication: CONSTIPATION
     Dosage: UNK
     Route: 048
     Dates: start: 20190925
  9. URSO [Concomitant]
     Active Substance: URSODIOL
     Indication: HEPATIC FUNCTION ABNORMAL
     Dosage: 400 MILLIGRAM, BID
     Route: 048
     Dates: start: 20180828

REACTIONS (1)
  - Interstitial lung disease [Not Recovered/Not Resolved]

NARRATIVE: CASE EVENT DATE: 20210816
